FAERS Safety Report 24433176 (Version 1)
Quarter: 2024Q4

REPORT INFORMATION
  Report Type: Spontaneous
  Country: CN (occurrence: CN)
  Receive Date: 20241014
  Receipt Date: 20241014
  Transmission Date: 20250114
  Serious: Yes (Other)
  Sender: BAYER HEALTHCARE PHARMACEUTICALS INC.
  Company Number: CN-BAYER-2024A145706

PATIENT
  Age: 58 Year
  Sex: Male
  Weight: 64 kg

DRUGS (2)
  1. STIVARGA [Suspect]
     Active Substance: REGORAFENIB MONOHYDRATE
     Indication: Chemotherapy
     Dosage: 120 MG, QD
     Route: 048
     Dates: start: 20240921, end: 20241011
  2. BEVACIZUMAB [Suspect]
     Active Substance: BEVACIZUMAB
     Indication: Targeted cancer therapy
     Dosage: 480 MG, QD WITH NORMAL SALINE 250ML
     Route: 041
     Dates: start: 20240921, end: 20240921

REACTIONS (2)
  - Myelosuppression [Unknown]
  - Off label use [None]

NARRATIVE: CASE EVENT DATE: 20240921
